FAERS Safety Report 8283946-6 (Version None)
Quarter: 2012Q2

REPORT INFORMATION
  Report Type: 
  Country: None (occurrence: None)
  Receive Date: 20120413
  Receipt Date: 20110725
  Transmission Date: 20120825
  Serious: No
  Sender: FDA-Public Use
  Company Number: US-ASTRAZENECA-2011SE44451

PATIENT
  Age: 61 Year
  Sex: Female

DRUGS (2)
  1. SIMVASTATIN [Concomitant]
     Indication: BLOOD CHOLESTEROL INCREASED
  2. NEXIUM [Suspect]
     Indication: GASTRITIS EROSIVE
     Route: 048
     Dates: start: 20040101, end: 20110701

REACTIONS (5)
  - OSTEOPENIA [None]
  - DRUG DOSE OMISSION [None]
  - THROAT IRRITATION [None]
  - DYSPEPSIA [None]
  - TYPE 2 DIABETES MELLITUS [None]
